FAERS Safety Report 8927759 (Version 2)
Quarter: 2012Q4

REPORT INFORMATION
  Report Type: 
  Country: US (occurrence: US)
  Receive Date: 20121126
  Receipt Date: 20121218
  Transmission Date: 20130627
  Serious: No
  Sender: FDA-Public Use
  Company Number: US-VERTEX PHARMACEUTICAL INC.-2012-024748

PATIENT
  Age: 22 Year
  Sex: Male
  Weight: 72 kg

DRUGS (4)
  1. INCIVEK [Suspect]
     Indication: HEPATITIS C
     Dosage: 750 mg, tid
     Route: 048
     Dates: start: 20121013, end: 20121112
  2. INCIVEK [Suspect]
     Dosage: 1 DF, UNK
     Route: 048
     Dates: start: 20121113
  3. COPEGUS [Suspect]
     Indication: HEPATITIS C
     Dosage: 600 mg am, 400 mg pm
     Dates: start: 20121013
  4. PEGASYS [Suspect]
     Indication: HEPATITIS C
     Dosage: 180 ?g, weekly
     Route: 058
     Dates: start: 20121013

REACTIONS (1)
  - Incorrect dose administered [Unknown]
